FAERS Safety Report 25224738 (Version 1)
Quarter: 2025Q2

REPORT INFORMATION
  Report Type: Spontaneous
  Country: US (occurrence: None)
  Receive Date: 20250421
  Receipt Date: 20250421
  Transmission Date: 20250717
  Serious: Yes (Hospitalization, Other)
  Sender: FDA-CTU
  Company Number: None

PATIENT
  Age: 38 Year
  Sex: Female
  Weight: 54.9 kg

DRUGS (5)
  1. HERBALS\TETRAHYDROCANNABIPHOROL [Suspect]
     Active Substance: HERBALS\TETRAHYDROCANNABIPHOROL
     Indication: Sleep disorder
     Dates: start: 20250418, end: 20250418
  2. VITAMIN C [Concomitant]
     Active Substance: ASCORBIC ACID
  3. FISH OIL [Concomitant]
     Active Substance: FISH OIL
  4. ZINC [Concomitant]
     Active Substance: ZINC
  5. Protein powder [Concomitant]

REACTIONS (5)
  - Loss of consciousness [None]
  - Seizure [None]
  - Gait disturbance [None]
  - Speech disorder [None]
  - Eye movement disorder [None]

NARRATIVE: CASE EVENT DATE: 20250418
